FAERS Safety Report 13143741 (Version 1)
Quarter: 2017Q1

REPORT INFORMATION
  Report Type: Report from Study
  Country: CA (occurrence: CA)
  Receive Date: 20170124
  Receipt Date: 20170124
  Transmission Date: 20170428
  Serious: Yes (Death)
  Sender: FDA-Public Use
  Company Number: CA-HLSUS-2016-CA-000652

PATIENT
  Age: 60 Year
  Sex: Male
  Weight: 68.7 kg

DRUGS (25)
  1. ZYPREXA [Concomitant]
     Active Substance: OLANZAPINE
     Dosage: 1 TABLET TWICE DAILY
     Route: 048
  2. FLEET ENEMA [Concomitant]
     Active Substance: SODIUM PHOSPHATE, DIBASIC\SODIUM PHOSPHATE, MONOBASIC
     Dosage: 1 ENEMA ONCE DAILY
     Route: 054
  3. MULTIVITAMINS [Concomitant]
     Active Substance: VITAMINS
     Dosage: 1 TABLET ONCE DAILY
     Route: 048
  4. VALISONE SCALP LOTION [Concomitant]
     Dosage: 3 TIMES A WEEK AT BED TIME
     Route: 061
  5. CLOZARIL [Suspect]
     Active Substance: CLOZAPINE
     Indication: SCHIZOPHRENIA
     Dosage: 150 MG AM, 650 MG HS
     Route: 048
     Dates: start: 20001211
  6. ADRENALIN CHLORIDE [Concomitant]
     Active Substance: EPINEPHRINE HYDROCHLORIDE
     Indication: ANAPHYLACTIC REACTION
     Dosage: 0.3 OR 0.5 ML AS NEEDED
     Route: 030
  7. ZOLOFT [Concomitant]
     Active Substance: SERTRALINE HYDROCHLORIDE
     Dosage: 2 CAPSULES ONCE DAILY
     Route: 048
  8. DULCOLAX NOS [Concomitant]
     Active Substance: BISACODYL OR DOCUSATE SODIUM
     Dosage: INSERT 1 SUP. ONCE DAILY
     Route: 054
  9. ASA 81MG ENTERIC COATED [Concomitant]
     Dosage: 1 TABLET ONCE DAILY
     Route: 048
  10. ATROVENT [Concomitant]
     Active Substance: IPRATROPIUM BROMIDE
     Dosage: INHALE FOUR TIMES A DAY
     Route: 048
  11. GLUCOPHAGE [Concomitant]
     Active Substance: METFORMIN HYDROCHLORIDE
     Dosage: 1/2 TAB MORNING, 1 TAB SUPPER
     Route: 048
  12. VENTOLIN [Concomitant]
     Active Substance: ALBUTEROL SULFATE
     Dosage: INHALE FOUR TIMES A DAY
     Route: 048
  13. TEVA-TOBRAMYCIN [Concomitant]
     Indication: LUNG DISORDER
     Dosage: INHALE ONCE DAILY
     Route: 048
  14. MILK OF MAGNESIA [Concomitant]
     Active Substance: MAGNESIUM HYDROXIDE
     Dosage: 30 ML ONCE DAILY
     Route: 048
  15. RATIO-LACTULOSE [Concomitant]
     Dosage: 30 ML AT BED TIME
     Route: 048
  16. PARIET [Concomitant]
     Active Substance: RABEPRAZOLE SODIUM
     Dosage: 1 TABLET ONCE DAILY
     Route: 048
  17. SENOKOT [Concomitant]
     Active Substance: SENNOSIDES
     Dosage: 2 TABLETS ONCE DAILY
     Route: 048
  18. FERROUS GLUCONATE [Concomitant]
     Active Substance: FERROUS GLUCONATE
     Dosage: 1 TABLET 3 TIMES A DAY
     Route: 048
  19. TAMIFLU [Concomitant]
     Active Substance: OSELTAMIVIR PHOSPHATE
     Indication: PROPHYLAXIS
     Route: 048
  20. GLYCERIN SUPPOSITORY [Concomitant]
     Active Substance: GLYCERIN
     Dosage: INSERT 1 SUP. ONCE DAILY
     Route: 054
  21. TYLENOL [Concomitant]
     Active Substance: ACETAMINOPHEN
     Dosage: 2 TAB EVERY 4 HRS AS NEEDED
     Route: 048
  22. ABENOL [Concomitant]
     Active Substance: ACETAMINOPHEN
     Dosage: 1 SUP. EVERY 4 HRS AS NEEDED
     Route: 054
  23. ISOPTO ATROPINE [Concomitant]
     Active Substance: ATROPINE SULFATE
     Dosage: 2 DROPS 4 TIMES A DAY
     Route: 060
  24. GLUCAGON. [Concomitant]
     Active Substance: GLUCAGON
     Dosage: 1 MG FOR SEVERE HYPOGLYCEMIA
     Route: 030
  25. OXYGEN. [Concomitant]
     Active Substance: OXYGEN
     Dosage: 3 LIT PER MIN.

REACTIONS (2)
  - Chronic obstructive pulmonary disease [Fatal]
  - Lower respiratory tract infection [Fatal]

NARRATIVE: CASE EVENT DATE: 20160929
